FAERS Safety Report 5800802-0 (Version None)
Quarter: 2008Q3

REPORT INFORMATION
  Report Type: 
  Country: None (occurrence: None)
  Receive Date: 20080703
  Receipt Date: 20080625
  Transmission Date: 20090109
  Serious: Yes (Hospitalization)
  Sender: FDA-Public Use
  Company Number: DE-MERCK-0806DEU00041

PATIENT
  Age: 57 Year
  Sex: Male
  Weight: 76 kg

DRUGS (7)
  1. ISENTRESS [Suspect]
     Indication: HIV INFECTION
     Route: 048
     Dates: start: 20080101, end: 20080605
  2. REYATAZ [Concomitant]
     Indication: HIV INFECTION
     Route: 065
     Dates: start: 20060101
  3. NORVIR [Concomitant]
     Indication: HIV INFECTION
     Route: 048
     Dates: start: 20060101
  4. ASPIRIN [Concomitant]
     Route: 048
  5. PRAVASTATIN SODIUM [Concomitant]
     Route: 048
     Dates: start: 20060101, end: 20080401
  6. PRAVASTATIN SODIUM [Concomitant]
     Route: 048
     Dates: start: 20080601
  7. HYDROCHLOROTHIAZIDE AND RAMIPRIL [Concomitant]
     Route: 048

REACTIONS (7)
  - ACUTE SINUSITIS [None]
  - BLOOD CREATININE INCREASED [None]
  - C-REACTIVE PROTEIN INCREASED [None]
  - JOINT SWELLING [None]
  - LIPODYSTROPHY ACQUIRED [None]
  - RASH [None]
  - RHABDOMYOLYSIS [None]
